FAERS Safety Report 4886132-2 (Version None)
Quarter: 2006Q1

REPORT INFORMATION
  Report Type: 
  Country: None (occurrence: None)
  Receive Date: 20060118
  Receipt Date: 20060118
  Transmission Date: 20060701
  Serious: Yes (Hospitalization)
  Sender: FDA-Public Use
  Company Number: None

PATIENT
  Age: 84 Year
  Sex: Female
  Weight: 68 kg

DRUGS (8)
  1. IBUPROFEN [Suspect]
     Indication: OSTEOARTHRITIS
     Dosage: 600 MG PO TID
     Route: 048
  2. ASPIRIN [Suspect]
     Indication: CEREBROVASCULAR ACCIDENT PROPHYLAXIS
     Dosage: 81 QD
  3. METHADONE HCL [Concomitant]
  4. LISINOPRIL [Concomitant]
  5. HYDROCHLOROTHIAZIDE [Concomitant]
  6. AGGRENOX [Concomitant]
  7. VITAMINS [Concomitant]
  8. VICODIN [Concomitant]

REACTIONS (9)
  - DIZZINESS [None]
  - EROSIVE DUODENITIS [None]
  - FAECAL INCONTINENCE [None]
  - GASTRIC ULCER [None]
  - HAEMATOCRIT DECREASED [None]
  - HAEMOGLOBIN DECREASED [None]
  - HEART RATE INCREASED [None]
  - OCCULT BLOOD POSITIVE [None]
  - WEIGHT DECREASED [None]
